FAERS Safety Report 5848914-X (Version None)
Quarter: 2008Q3

REPORT INFORMATION
  Report Type: 
  Country: None (occurrence: None)
  Receive Date: 20080819
  Receipt Date: 20080808
  Transmission Date: 20090109
  Serious: Yes (Death)
  Sender: FDA-Public Use
  Company Number: US-RANBAXY-2008RR-17158

PATIENT

DRUGS (4)
  1. PSEUDOEPHEDRINE HYDROCHLORIDE [Suspect]
     Indication: COUGH
     Dosage: UNK
  2. PSEUDOEPHEDRINE HYDROCHLORIDE [Suspect]
     Indication: NASOPHARYNGITIS
  3. DEXTROMETHORPHAN [Suspect]
     Indication: COUGH
  4. BROMPHENIRAMINE [Suspect]
     Indication: NASOPHARYNGITIS

REACTIONS (1)
  - DEATH [None]
